FAERS Safety Report 5925864-1 (Version None)
Quarter: 2008Q4

REPORT INFORMATION
  Report Type: 
  Country: None (occurrence: None)
  Receive Date: 20081021
  Receipt Date: 20081009
  Transmission Date: 20090506
  Serious: Yes (Other)
  Sender: FDA-Public Use
  Company Number: DK-PFIZER INC-2008075214

PATIENT
  Sex: Female

DRUGS (6)
  1. LYRICA [Suspect]
     Indication: ANXIETY
     Route: 048
     Dates: start: 20080826, end: 20080905
  2. LYRICA [Interacting]
     Dosage: TEXT:BID DAILY TDD:450MG
     Dates: start: 20080829
  3. SERDOLECT [Interacting]
     Indication: SCHIZOPHRENIA
     Route: 048
     Dates: start: 20071101
  4. SERDOLECT [Interacting]
     Indication: DEPRESSION
  5. CIPRALEX [Interacting]
     Indication: SCHIZOPHRENIA
     Route: 048
     Dates: start: 20071101
  6. CIPRALEX [Interacting]
     Indication: DEPRESSION

REACTIONS (3)
  - ACCOMMODATION DISORDER [None]
  - DRUG INTERACTION [None]
  - DYSKINESIA [None]
